FAERS Safety Report 9163530 (Version 2)
Quarter: 2013Q1

REPORT INFORMATION
  Report Type: Spontaneous
  Country: GB (occurrence: None)
  Receive Date: 20130221
  Receipt Date: 20130307
  Transmission Date: 20140127
  Serious: Yes (Other)
  Sender: FDA-Public Use
  Company Number: KAD201302-000222

PATIENT
  Age: 49 Year
  Sex: Male
  Weight: 57 kg

DRUGS (3)
  1. RIBAVIRIN [Suspect]
     Indication: HEPATITIS C
     Dates: start: 20121012, end: 20130108
  2. PEGASYS [Suspect]
     Indication: HEPATITIS C
     Route: 058
  3. INCIVO (TELAPREVIR) [Suspect]
     Indication: HEPATITIS C
     Route: 048
     Dates: start: 20121012, end: 20130108

REACTIONS (4)
  - Retinal haemorrhage [None]
  - Retinal exudates [None]
  - Vitreous floaters [None]
  - Vision blurred [None]
